FAERS Safety Report 8072899-1 (Version None)
Quarter: 2012Q1

REPORT INFORMATION
  Report Type: 
  Country: None (occurrence: None)
  Receive Date: 20120120
  Receipt Date: 20111227
  Transmission Date: 20120608
  Serious: No
  Sender: FDA-Public Use
  Company Number: B0772567A

PATIENT
  Sex: Male

DRUGS (9)
  1. ENALAPRIL MALEATE [Concomitant]
  2. NITROGLYCERIN [Concomitant]
  3. WARFARIN SODIUM [Concomitant]
  4. LANOXIN [Suspect]
     Indication: CARDIAC FAILURE
     Dosage: .25 MG/   / ORAL
     Route: 048
     Dates: start: 20110825, end: 20110925
  5. SPIRONOLACTONE [Concomitant]
  6. METOPROLOL [Concomitant]
  7. FUROSEMIDE [Concomitant]
  8. ALLOPURINOL [Concomitant]
  9. SUGUAN TABLET (SUGUAN) [Suspect]
     Indication: TYPE 2 DIABETES MELLITUS
     Dosage: / ORAL
     Route: 048
     Dates: start: 20090101, end: 20110925

REACTIONS (2)
  - TOXICITY TO VARIOUS AGENTS [None]
  - HYPOGLYCAEMIA [None]
